FAERS Safety Report 8453537-2 (Version None)
Quarter: 2012Q2

REPORT INFORMATION
  Report Type: 
  Country: None (occurrence: None)
  Receive Date: 20120620
  Receipt Date: 20120522
  Transmission Date: 20120825
  Serious: No
  Sender: FDA-Public Use
  Company Number: US-VERTEX PHARMACEUTICALS INC.-AE-2012-007618

PATIENT
  Sex: Female
  Weight: 86.714 kg

DRUGS (11)
  1. DIOVAN [Concomitant]
     Indication: HYPERTENSION
     Route: 048
  2. RIBASPHERE [Concomitant]
     Indication: HEPATITIS C
     Route: 048
     Dates: start: 20120515
  3. GLIPIZIDE [Concomitant]
     Indication: DIABETES MELLITUS
     Route: 048
  4. PEGASYS [Concomitant]
     Indication: HEPATITIS C
     Route: 058
     Dates: start: 20120515
  5. TRAZODONE HCL [Concomitant]
     Indication: DEPRESSION
     Route: 048
  6. VICODIN [Concomitant]
     Indication: PAIN
     Route: 048
  7. INCIVEK [Suspect]
     Indication: HEPATITIS C
     Route: 048
     Dates: start: 20120515
  8. HYDRALAZINE HYDROCHLORIDE [Concomitant]
     Indication: HYPERTENSION
     Route: 048
  9. FUROSEMIDE [Concomitant]
     Indication: HYPERTENSION
     Route: 048
  10. ATENOLOL [Concomitant]
     Indication: HYPERTENSION
     Route: 048
  11. METFORMIN HCL [Concomitant]
     Indication: DIABETES MELLITUS
     Route: 048

REACTIONS (1)
  - FATIGUE [None]
